FAERS Safety Report 8917155 (Version 1)
Quarter: 2012Q4

REPORT INFORMATION
  Report Type: 
  Country: CA (occurrence: CA)
  Receive Date: 20121120
  Receipt Date: 20121120
  Transmission Date: 20130627
  Serious: Yes (Death)
  Sender: FDA-Public Use
  Company Number: CA-BAXTER-2012BAX023409

PATIENT
  Age: 63 Year
  Sex: Male

DRUGS (1)
  1. DIANEAL PD4 SOLUTION WITH 2.5% DEXTROSE AND 2.5 MEQ/L CALCIUM [Suspect]
     Indication: PERITONEAL DIALYSIS
     Route: 033
     Dates: end: 20121027

REACTIONS (3)
  - Congenital cystic kidney disease [Fatal]
  - Thrombosis [Fatal]
  - Pulmonary thrombosis [Fatal]
